FAERS Safety Report 5210225-3 (Version None)
Quarter: 2006Q4

REPORT INFORMATION
  Report Type: 
  Country: None (occurrence: None)
  Receive Date: 20061127
  Receipt Date: 20060406
  Transmission Date: 20070319
  Serious: Yes (Other)
  Sender: FDA-Public Use
  Company Number: 2006BH007558

PATIENT
  Sex: Male

DRUGS (1)
  1. DIANEAL [Suspect]
     Indication: DIALYSIS
     Dosage: IP
     Route: 033

REACTIONS (2)
  - CORYNEBACTERIUM INFECTION [None]
  - PERITONITIS BACTERIAL [None]
